FAERS Safety Report 6314079-3 (Version None)
Quarter: 2009Q3

REPORT INFORMATION
  Report Type: 
  Country: None (occurrence: None)
  Receive Date: 20090814
  Receipt Date: 20090730
  Transmission Date: 20100115
  Serious: Yes (Other)
  Sender: FDA-Public Use
  Company Number: THQ2009A03619

PATIENT
  Age: 77 Year
  Sex: Female

DRUGS (6)
  1. LANSOPRAZOLE [Suspect]
     Indication: GASTROOESOPHAGEAL REFLUX DISEASE
     Dosage: 30 MG (30 MG,1 IN 1 D)
  2. FEVERFEW (TANACETUM PARTHENIUM) [Suspect]
  3. GARLIC (ALLUM SATIVUM) [Suspect]
  4. GINSENG NOS [Suspect]
  5. ST. JOHN'S WORT (HYPERICUM PERFORATUM) [Suspect]
  6. ECHINACEA [Concomitant]

REACTIONS (3)
  - ABDOMINAL PAIN UPPER [None]
  - DRUG INTERACTION [None]
  - UPPER GASTROINTESTINAL HAEMORRHAGE [None]
